FAERS Safety Report 10747686 (Version 2)
Quarter: 2015Q2

REPORT INFORMATION
  Report Type: Spontaneous
  Country: US (occurrence: None)
  Receive Date: 20150120
  Receipt Date: 20150420
  Transmission Date: 20150821
  Serious: No
  Sender: FDA-Public Use
  Company Number: AEGR000873

PATIENT
  Age: 66 Year
  Sex: Male
  Weight: 94.3 kg

DRUGS (15)
  1. ASPIRIN (ACETYLSALICYLIC ACID) [Concomitant]
     Active Substance: ASPIRIN
  2. LEVOXYL (LEVOTHYROXINE SODIUM) [Concomitant]
  3. FLONASE [Concomitant]
     Active Substance: FLUTICASONE PROPIONATE
  4. FLUOCINONIDE (FLUOCINONIDE) [Concomitant]
  5. PLAVIX (CLOPIDOGREL BISULFATE) [Concomitant]
  6. HYDRALAZINE (HYDRALAZINE) [Concomitant]
     Active Substance: HYDRALAZINE HYDROCHLORIDE
  7. CYMBALTA [Concomitant]
     Active Substance: DULOXETINE HYDROCHLORIDE
  8. NITROGLYCERIN (NITROGLYCERIN) [Concomitant]
     Active Substance: NITROGLYCERIN
  9. JUXTAPID [Suspect]
     Active Substance: LOMITAPIDE MESYLATE
     Indication: TYPE IIA HYPERLIPIDAEMIA
     Route: 048
     Dates: start: 20140328, end: 20140624
  10. XANAX [Concomitant]
     Active Substance: ALPRAZOLAM
  11. AMLODIPINE [Concomitant]
     Active Substance: AMLODIPINE BESYLATE
  12. LIVALO [Suspect]
     Active Substance: PITAVASTATIN CALCIUM
     Indication: HYPERLIPIDAEMIA
     Dosage: 2 MG, TAKEN ON MONDAY, WEDNESDAY, AND FRIDAY
     Route: 048
     Dates: start: 20140515
  13. AMBIEN [Concomitant]
     Active Substance: ZOLPIDEM TARTRATE
  14. SPIRONOLACTONE (SPIRONOLACTONE) [Concomitant]
     Active Substance: SPIRONOLACTONE
  15. BYSTOLIC [Concomitant]
     Active Substance: NEBIVOLOL HYDROCHLORIDE

REACTIONS (3)
  - Diarrhoea [None]
  - Abdominal pain upper [None]
  - Abdominal pain [None]

NARRATIVE: CASE EVENT DATE: 20150217
